FAERS Safety Report 4865000-6 (Version None)
Quarter: 2005Q4

REPORT INFORMATION
  Report Type: 
  Country: None (occurrence: None)
  Receive Date: 20051223
  Receipt Date: 20051213
  Transmission Date: 20060501
  Serious: Yes (Other)
  Sender: FDA-Public Use
  Company Number: PHNR2005AU01716

PATIENT
  Sex: Male

DRUGS (3)
  1. CLOZARIL [Suspect]
     Indication: SCHIZOPHRENIA
     Dosage: 250-450 MG DAILY
     Dates: start: 20050111
  2. NALTREXONE [Suspect]
  3. LUVOX [Suspect]

REACTIONS (4)
  - ALCOHOLISM [None]
  - DRUG INTERACTION [None]
  - SALIVARY HYPERSECRETION [None]
  - SEDATION [None]
